FAERS Safety Report 8793395 (Version 7)
Quarter: 2016Q3

REPORT INFORMATION
  Report Type: Spontaneous
  Country: US (occurrence: US)
  Receive Date: 20120917
  Receipt Date: 20160804
  Transmission Date: 20161109
  Serious: Yes (Hospitalization, Other)
  Sender: FDA-Public Use
  Company Number: US-009507513-1209USA002337

PATIENT
  Sex: Female

DRUGS (3)
  1. FOSAMAX [Suspect]
     Active Substance: ALENDRONATE SODIUM
     Indication: OSTEOPOROSIS
     Dosage: 70 MG, UNKNOWN
     Route: 048
     Dates: start: 200503, end: 200805
  2. FOSAMAX [Suspect]
     Active Substance: ALENDRONATE SODIUM
     Indication: OSTEOPENIA
  3. ALENDRONATE SODIUM. [Suspect]
     Active Substance: ALENDRONATE SODIUM
     Indication: PRODUCT USED FOR UNKNOWN INDICATION
     Dosage: 70 MG, UNKNOWN
     Route: 048
     Dates: start: 20080721, end: 201012

REACTIONS (24)
  - Calcium deficiency [Unknown]
  - Neuropathy peripheral [Unknown]
  - Open reduction of fracture [Unknown]
  - Blood cholesterol increased [Unknown]
  - Vertigo [Not Recovered/Not Resolved]
  - Open reduction of fracture [Unknown]
  - Skin cancer [Unknown]
  - Femur fracture [Unknown]
  - Hypotension [Unknown]
  - Hyperlipidaemia [Unknown]
  - Hysterectomy [Unknown]
  - Bursitis [Unknown]
  - Lumbar radiculopathy [Unknown]
  - Femur fracture [Unknown]
  - Osteoarthritis [Unknown]
  - Bone disorder [Unknown]
  - Neoplasm malignant [Unknown]
  - Depression [Unknown]
  - Depression [Unknown]
  - Intervertebral disc degeneration [Unknown]
  - Dementia [Not Recovered/Not Resolved]
  - Onychomycosis [Unknown]
  - Pain [Unknown]
  - Oedema peripheral [Unknown]

NARRATIVE: CASE EVENT DATE: 2005
